FAERS Safety Report 19772171 (Version 1)
Quarter: 2021Q3

REPORT INFORMATION
  Report Type: Spontaneous
  Country: US (occurrence: US)
  Receive Date: 20210830
  Receipt Date: 20210830
  Transmission Date: 20211014
  Serious: No
  Sender: FDA-Public Use
  Company Number: None

PATIENT
  Sex: Female

DRUGS (2)
  1. EVEROLIMUS 7.5MG PAR [Suspect]
     Active Substance: EVEROLIMUS
     Indication: BREAST CANCER FEMALE
     Route: 048
  2. EVEROLIMUS 7.5MG PAR [Suspect]
     Active Substance: EVEROLIMUS
     Indication: METASTASES TO OVARY
     Route: 048

REACTIONS (2)
  - Lung disorder [None]
  - Oedema peripheral [None]
